FAERS Safety Report 4743458-0 (Version None)
Quarter: 2005Q3

REPORT INFORMATION
  Report Type: 
  Country: None (occurrence: None)
  Receive Date: 20050809
  Receipt Date: 20050726
  Transmission Date: 20060218
  Serious: No
  Sender: FDA-Public Use
  Company Number: 02100-JPN-04-0214

PATIENT
  Age: 36 Year
  Sex: Male

DRUGS (8)
  1. CILOSTAZOL [Suspect]
     Indication: THROMBOANGIITIS OBLITERANS
     Dosage: 200 MG, ORAL
     Route: 048
     Dates: start: 20030506, end: 20031101
  2. CILOSTAZOL [Suspect]
     Indication: THROMBOANGIITIS OBLITERANS
     Dosage: 200 MG, ORAL
     Route: 048
     Dates: start: 20040301, end: 20040508
  3. BERAPROST SODIUM [Suspect]
     Indication: THROMBOANGIITIS OBLITERANS
     Dosage: 120 MCG ORAL
     Route: 048
     Dates: start: 20031122, end: 20040301
  4. OMEPRAZOLE [Suspect]
     Indication: GASTRITIS
     Dosage: 20 MG/10 MG ORAL
     Route: 048
     Dates: start: 20031213, end: 20040123
  5. OMEPRAZOLE [Suspect]
     Indication: REFLUX OESOPHAGITIS
     Dosage: 20 MG/10 MG ORAL
     Route: 048
     Dates: start: 20031213, end: 20040123
  6. OMEPRAZOLE [Suspect]
     Indication: GASTRITIS
     Dosage: 20 MG/10 MG ORAL
     Route: 048
     Dates: start: 20040124, end: 20040501
  7. OMEPRAZOLE [Suspect]
     Indication: REFLUX OESOPHAGITIS
     Dosage: 20 MG/10 MG ORAL
     Route: 048
     Dates: start: 20040124, end: 20040501
  8. LAFUTIDINE [Concomitant]

REACTIONS (7)
  - FEELING ABNORMAL [None]
  - GASTRITIS [None]
  - HEADACHE [None]
  - INTERSTITIAL LUNG DISEASE [None]
  - MUSCULOSKELETAL STIFFNESS [None]
  - REFLUX OESOPHAGITIS [None]
  - SCLERODERMA [None]
